FAERS Safety Report 6362049-1 (Version None)
Quarter: 2009Q3

REPORT INFORMATION
  Report Type: 
  Country: None (occurrence: None)
  Receive Date: 20090918
  Receipt Date: 20090903
  Transmission Date: 20100115
  Serious: Yes (Hospitalization)
  Sender: FDA-Public Use
  Company Number: DE-GENENTECH-290611

PATIENT
  Sex: Female

DRUGS (1)
  1. RITUXIMAB [Suspect]
     Indication: NON-HODGKIN'S LYMPHOMA
     Route: 065

REACTIONS (4)
  - INTRACARDIAC THROMBUS [None]
  - PULMONARY EMBOLISM [None]
  - PYREXIA [None]
  - URINARY TRACT INFECTION [None]
